FAERS Safety Report 5532063-4 (Version None)
Quarter: 2007Q4

REPORT INFORMATION
  Report Type: 
  Country: None (occurrence: None)
  Receive Date: 20071203
  Receipt Date: 20071130
  Transmission Date: 20080405
  Serious: Yes (Life-Threatening, Hospitalization)
  Sender: FDA-Public Use
  Company Number: B0496645A

PATIENT
  Age: 75 Year
  Sex: Male

DRUGS (2)
  1. ZANTAC [Suspect]
     Indication: ALLERGY PROPHYLAXIS
     Route: 065
     Dates: end: 20071121
  2. ORGADRONE [Concomitant]
     Route: 065

REACTIONS (6)
  - BLOOD PRESSURE DECREASED [None]
  - DYSPNOEA [None]
  - ERYTHEMA [None]
  - PALLOR [None]
  - PRURITUS [None]
  - SHOCK [None]
